FAERS Safety Report 7440775-0 (Version None)
Quarter: 2011Q2

REPORT INFORMATION
  Report Type: 
  Country: None (occurrence: None)
  Receive Date: 20110427
  Receipt Date: 20110425
  Transmission Date: 20111010
  Serious: Yes (Death, Life-Threatening)
  Sender: FDA-Public Use
  Company Number: JP-PFIZER INC-2011088308

PATIENT
  Age: 78 Year
  Sex: Male

DRUGS (3)
  1. LYRICA [Suspect]
     Indication: NEURALGIA
     Dosage: 75MG A DAY
     Route: 048
     Dates: start: 20110316, end: 20110322
  2. PALUX [Concomitant]
     Dosage: UNK
     Route: 041
     Dates: start: 20110315
  3. LYRICA [Suspect]
     Dosage: 50 MG A DAY
     Dates: start: 20110323, end: 20110323

REACTIONS (1)
  - INTERSTITIAL LUNG DISEASE [None]
